FAERS Safety Report 4589735-8 (Version None)
Quarter: 2005Q1

REPORT INFORMATION
  Report Type: 
  Country: None (occurrence: None)
  Receive Date: 20050223
  Receipt Date: 20050209
  Transmission Date: 20050727
  Serious: Yes (Other)
  Sender: FDA-Public Use
  Company Number: US-JNJFOC-20041206579

PATIENT
  Sex: Male

DRUGS (4)
  1. LEVAQUIN [Suspect]
     Indication: BRONCHITIS
  2. DIOVAN HCT [Concomitant]
  3. DIOVAN HCT [Concomitant]
     Indication: HYPERTENSION
  4. PRAVACHOL [Concomitant]

REACTIONS (3)
  - FIBULA FRACTURE [None]
  - JOINT SPRAIN [None]
  - TENDON RUPTURE [None]
